FAERS Safety Report 5083834-2 (Version None)
Quarter: 2006Q3

REPORT INFORMATION
  Report Type: 
  Country: None (occurrence: None)
  Receive Date: 20060818
  Receipt Date: 20060810
  Transmission Date: 20061208
  Serious: Yes (Life-Threatening, Hospitalization)
  Sender: FDA-Public Use
  Company Number: US-JNJFOC-20060802717

PATIENT
  Sex: Male
  Weight: 68.04 kg

DRUGS (3)
  1. DOXIL [Suspect]
     Route: 042
  2. DOXIL [Suspect]
     Indication: HEPATIC NEOPLASM
     Route: 042
  3. ST. JOSEPH ASPIRIN [Concomitant]
     Indication: DRUG USE FOR UNKNOWN INDICATION

REACTIONS (5)
  - CARDIAC FAILURE CONGESTIVE [None]
  - HEART RATE IRREGULAR [None]
  - IMPLANTABLE DEFIBRILLATOR INSERTION [None]
  - MYOCARDIAL INFARCTION [None]
  - WEIGHT DECREASED [None]
